FAERS Safety Report 4490462-6 (Version None)
Quarter: 2004Q4

REPORT INFORMATION
  Report Type: 
  Country: None (occurrence: None)
  Receive Date: 20041028
  Receipt Date: 20041022
  Transmission Date: 20050328
  Serious: Yes (Hospitalization, Disabling)
  Sender: FDA-Public Use
  Company Number: 2004UW19590

PATIENT
  Age: 52 Year
  Sex: Female
  Weight: 58.9676 kg

DRUGS (2)
  1. SEROQUEL [Suspect]
     Indication: PSYCHOTIC DISORDER
     Dosage: 400 MG QD PO
     Route: 048
     Dates: start: 20031015, end: 20040903
  2. VALPROIC ACID [Concomitant]

REACTIONS (2)
  - MOVEMENT DISORDER [None]
  - TIC [None]
